FAERS Safety Report 7792972-2 (Version None)
Quarter: 2011Q4

REPORT INFORMATION
  Report Type: 
  Country: None (occurrence: None)
  Receive Date: 20111003
  Receipt Date: 20110926
  Transmission Date: 20120403
  Serious: Yes (Other)
  Sender: FDA-Public Use
  Company Number: PHHY2011NL85436

PATIENT
  Sex: Female

DRUGS (3)
  1. ZOMETA [Suspect]
     Dosage: 4 MG /5 ML ONCE PER 28 DAYS
     Route: 042
     Dates: start: 20110901
  2. ZOMETA [Suspect]
     Indication: METASTASIS
     Dosage: 4 MG / 5 ML ONCE PER 28 DAYS
     Route: 042
     Dates: start: 20100909
  3. ZOMETA [Suspect]
     Dosage: 4 MG /5 ML ONCE PER 28 DAYS
     Route: 042
     Dates: start: 20110926

REACTIONS (2)
  - OCULAR NEOPLASM [None]
  - EYE SWELLING [None]
